FAERS Safety Report 7827077-5 (Version None)
Quarter: 2011Q4

REPORT INFORMATION
  Report Type: 
  Country: None (occurrence: None)
  Receive Date: 20111020
  Receipt Date: 20111012
  Transmission Date: 20120403
  Serious: Yes (Death, Other)
  Sender: FDA-Public Use
  Company Number: US-AMGEN-USASP2011052967

PATIENT
  Sex: Male

DRUGS (2)
  1. NPLATE [Suspect]
     Indication: IDIOPATHIC THROMBOCYTOPENIC PURPURA
     Dosage: 500 MUG, UNK
     Dates: start: 20080930, end: 20100823
  2. CORTICOSTEROIDS [Concomitant]
     Indication: IDIOPATHIC THROMBOCYTOPENIC PURPURA

REACTIONS (5)
  - THERAPEUTIC RESPONSE DECREASED [None]
  - CHRONIC MYELOMONOCYTIC LEUKAEMIA [None]
  - THROMBOSIS [None]
  - EMBOLISM [None]
  - ACUTE MYELOID LEUKAEMIA [None]
